FAERS Safety Report 9272017 (Version 2)
Quarter: 2013Q2

REPORT INFORMATION
  Report Type: Spontaneous
  Country: US (occurrence: US)
  Receive Date: 20130506
  Receipt Date: 20130513
  Transmission Date: 20140414
  Serious: Yes (Hospitalization)
  Sender: FDA-Public Use
  Company Number: US-GILEAD-2013-0074483

PATIENT
  Age: 19 Year
  Sex: Female

DRUGS (1)
  1. LETAIRIS [Suspect]
     Indication: PRODUCT USED FOR UNKNOWN INDICATION
     Dosage: 10 MG, UNK
     Route: 048
     Dates: start: 20120731

REACTIONS (4)
  - Sickle cell anaemia with crisis [Unknown]
  - Transfusion reaction [Unknown]
  - Oxygen supplementation [Unknown]
  - Respiratory distress [Unknown]
